FAERS Safety Report 9260900 (Version 1)
Quarter: 2013Q2

REPORT INFORMATION
  Report Type: Spontaneous
  Country: US (occurrence: US)
  Receive Date: 20130429
  Receipt Date: 20130429
  Transmission Date: 20140414
  Serious: No
  Sender: FDA-Public Use
  Company Number: US-AMGEN-USASP2012030029

PATIENT
  Age: 77 Year
  Sex: Female

DRUGS (1)
  1. SENSIPAR [Suspect]
     Indication: RENAL FAILURE CHRONIC
     Dosage: 30 MG, QD
     Route: 048
     Dates: start: 201204, end: 201205

REACTIONS (2)
  - Formication [Recovering/Resolving]
  - Pruritus [Recovering/Resolving]
